FAERS Safety Report 5506428-0 (Version None)
Quarter: 2007Q4

REPORT INFORMATION
  Report Type: 
  Country: None (occurrence: None)
  Receive Date: 20071105
  Receipt Date: 20071026
  Transmission Date: 20080405
  Serious: Yes (Hospitalization)
  Sender: FDA-Public Use
  Company Number: B0493422A

PATIENT
  Sex: Male

DRUGS (1)
  1. PANADOL [Suspect]
     Indication: DRUG USE FOR UNKNOWN INDICATION
     Route: 065

REACTIONS (3)
  - ANAEMIA [None]
  - HAEMATEMESIS [None]
  - MELAENA [None]
